FAERS Safety Report 7417251-4 (Version None)
Quarter: 2011Q2

REPORT INFORMATION
  Report Type: 
  Country: None (occurrence: None)
  Receive Date: 20110415
  Receipt Date: 20110324
  Transmission Date: 20111010
  Serious: Yes (Hospitalization, Other)
  Sender: FDA-Public Use
  Company Number: US-BAYER-200934029NA

PATIENT
  Age: 21 Year
  Sex: Female
  Weight: 73 kg

DRUGS (7)
  1. ALBUTEROL [Concomitant]
     Dosage: UNK
     Dates: start: 20050101
  2. OMEPRAZOLE [Concomitant]
     Dosage: 20 MG/D, UNK
  3. YAZ [Suspect]
     Indication: CONTRACEPTION
     Dosage: UNK
     Dates: start: 20070901, end: 20080915
  4. DEPAKOTE [Concomitant]
     Dosage: UNK
     Dates: start: 20070101, end: 20090101
  5. ESEGIC [Concomitant]
     Indication: MIGRAINE
  6. LIBRAX [Concomitant]
  7. IBUPROFEN [Concomitant]
     Indication: MIGRAINE

REACTIONS (2)
  - PAIN [None]
  - PULMONARY EMBOLISM [None]
